FAERS Safety Report 6551979-3 (Version None)
Quarter: 2010Q1

REPORT INFORMATION
  Report Type: 
  Country: None (occurrence: None)
  Receive Date: 20100126
  Receipt Date: 20100113
  Transmission Date: 20100710
  Serious: Yes (Disabling)
  Sender: FDA-Public Use
  Company Number: JP-ELI_LILLY_AND_COMPANY-JP201001003088

PATIENT
  Age: 21 Year
  Sex: Female

DRUGS (4)
  1. ZYPREXA [Suspect]
     Dosage: 2.5 MG, DAILY (1/D)
     Route: 048
     Dates: start: 20090101, end: 20091101
  2. ZYPREXA [Suspect]
     Dosage: 1.25 MG, DAILY (1/D)
     Route: 048
     Dates: start: 20100101
  3. LENDORMIN [Concomitant]
     Dosage: 0.25 MG, DAILY (1/D)
     Route: 048
     Dates: start: 20090101
  4. ABILIFY [Concomitant]
     Dates: start: 20091101

REACTIONS (2)
  - INSOMNIA [None]
  - MENORRHAGIA [None]
